FAERS Safety Report 14626936 (Version 3)
Quarter: 2020Q4

REPORT INFORMATION
  Report Type: Spontaneous
  Country: US (occurrence: US)
  Receive Date: 20180312
  Receipt Date: 20201207
  Transmission Date: 20210113
  Serious: No
  Sender: FDA-Public Use
  Company Number: US-BIOGEN-2015BI155469

PATIENT
  Age: 45 Year
  Sex: Female

DRUGS (3)
  1. PLEGRIDY [Suspect]
     Active Substance: PEGINTERFERON BETA-1A
     Indication: MULTIPLE SCLEROSIS
     Route: 050
     Dates: start: 20150121, end: 201502
  2. SUMATRIPTAN. [Concomitant]
     Active Substance: SUMATRIPTAN
     Indication: MIGRAINE
     Route: 065
  3. PLEGRIDY [Suspect]
     Active Substance: PEGINTERFERON BETA-1A
     Indication: MULTIPLE SCLEROSIS
     Route: 058
     Dates: start: 201502

REACTIONS (19)
  - Fatigue [Unknown]
  - Influenza like illness [Recovered/Resolved]
  - Intervertebral disc protrusion [Not Recovered/Not Resolved]
  - Urticaria [Not Recovered/Not Resolved]
  - Memory impairment [Not Recovered/Not Resolved]
  - Emotional distress [Unknown]
  - Depression [Not Recovered/Not Resolved]
  - Chills [Unknown]
  - Headache [Recovered/Resolved]
  - Diarrhoea [Unknown]
  - Anxiety [Not Recovered/Not Resolved]
  - Neck pain [Not Recovered/Not Resolved]
  - Migraine [Not Recovered/Not Resolved]
  - Concussion [Not Recovered/Not Resolved]
  - Weight decreased [Recovered/Resolved]
  - Product dose omission issue [Unknown]
  - Acne [Not Recovered/Not Resolved]
  - Hormone level abnormal [Not Recovered/Not Resolved]
  - Nausea [Unknown]

NARRATIVE: CASE EVENT DATE: 20151120
